FAERS Safety Report 9552267 (Version 1)
Quarter: 2013Q3

REPORT INFORMATION
  Report Type: Spontaneous
  Country: US (occurrence: None)
  Receive Date: 20130724
  Receipt Date: 20130724
  Transmission Date: 20140515
  Serious: Yes (Hospitalization)
  Sender: FDA-Public Use
  Company Number: PHEH2013US007111

PATIENT
  Age: 63 Year
  Sex: Female

DRUGS (7)
  1. RECLAST (ZOLEDRONATE) SOLUTION FOR INJECTION [Suspect]
     Indication: OSTEOPOROSIS
     Dosage: 5 MG, ANNUALLY, INTRAVENOUS
     Route: 042
     Dates: start: 20120501
  2. PLAQUENIL (HYDROXYCHLOROQUINE SULFATE) / ORAL / TABLET, FILM COATED / 200 MILLIGRAM(S) [Concomitant]
  3. ASPIRIN (ACETYLSALICYLIC ACID) [Concomitant]
  4. COREG (CARVEDILOL) [Concomitant]
  5. VITAMIN D (ERGOCALCIFEROL) [Concomitant]
  6. LASIX (FUROSEMIDE) [Concomitant]
  7. DIOVAN (VALSARTAN) [Concomitant]

REACTIONS (4)
  - Malaise [None]
  - Paraesthesia [None]
  - Arthralgia [None]
  - Back pain [None]
